FAERS Safety Report 7216466-8 (Version None)
Quarter: 2011Q1

REPORT INFORMATION
  Report Type: 
  Country: None (occurrence: None)
  Receive Date: 20110107
  Receipt Date: 20110106
  Transmission Date: 20110831
  Serious: Yes (Other)
  Sender: FDA-Public Use
  Company Number: US-AMGEN-QUU412357

PATIENT

DRUGS (18)
  1. NPLATE [Suspect]
     Dosage: 9 A?G/KG, QWK
     Route: 058
     Dates: start: 20100208, end: 20100510
  2. RITUXIMAB [Concomitant]
     Dosage: UNK UNK, UNK
     Dates: start: 20100114, end: 20100322
  3. PHENOXYMETHYLPENICILLIN [Concomitant]
     Dosage: 500 MG, QD
  4. DAPSONE [Concomitant]
     Dosage: 100 MG, UNK
  5. CLONAZEPAM [Concomitant]
     Dosage: 1 MG, PRN
  6. NPLATE [Suspect]
     Indication: IDIOPATHIC THROMBOCYTOPENIC PURPURA
     Dosage: 9 A?G/KG, QWK
     Route: 058
     Dates: start: 20100208, end: 20100510
  7. NPLATE [Suspect]
     Dosage: 9 A?G/KG, QWK
     Route: 058
     Dates: start: 20100208, end: 20100510
  8. NPLATE [Suspect]
     Dosage: 9 A?G/KG, QWK
     Route: 058
     Dates: start: 20100208, end: 20100510
  9. NPLATE [Suspect]
     Dosage: 9 A?G/KG, QWK
     Route: 058
     Dates: start: 20100208, end: 20100510
  10. NPLATE [Suspect]
     Dosage: 9 A?G/KG, QWK
     Route: 058
     Dates: start: 20100208, end: 20100510
  11. FOLIC ACID [Concomitant]
     Dosage: 2 MG, QD
  12. ERGOCALCIFEROL [Concomitant]
     Dosage: 50000 IU, QWK
  13. NPLATE [Suspect]
     Dosage: 9 A?G/KG, QWK
     Route: 058
     Dates: start: 20100208, end: 20100510
  14. VALACYCLOVIR HYDROCHLORIDE [Concomitant]
     Dosage: 500 MG, QD
  15. OS-CAL [Concomitant]
     Dosage: 600 MG, BID
  16. PREDNISONE [Concomitant]
     Dosage: 1 MG/KG, QD
     Dates: start: 20100114
  17. NPLATE [Suspect]
     Dates: start: 20100208
  18. FLUCONAZOLE [Concomitant]
     Dosage: UNK UNK, QD

REACTIONS (6)
  - MYALGIA [None]
  - THROMBOCYTOPENIA [None]
  - DRUG INEFFECTIVE [None]
  - PHOTOSENSITIVITY REACTION [None]
  - RETICULIN INCREASED [None]
  - FLUID RETENTION [None]
